FAERS Safety Report 9934617 (Version 2)
Quarter: 2014Q1

REPORT INFORMATION
  Report Type: Spontaneous
  Country: DE (occurrence: DE)
  Receive Date: 20140228
  Receipt Date: 20140307
  Transmission Date: 20141002
  Serious: Yes (Death)
  Sender: FDA-Public Use
  Company Number: DE-ACTELION-A-CH2014-95513

PATIENT
  Age: 64 Year
  Sex: Female

DRUGS (2)
  1. TRACLEER [Suspect]
     Indication: SCLERODERMA ASSOCIATED DIGITAL ULCER
     Dosage: 125 MG, BID
     Route: 048
     Dates: start: 20040915, end: 20140122
  2. METHOTREXATE [Concomitant]
     Indication: SCLERODERMA ASSOCIATED DIGITAL ULCER

REACTIONS (1)
  - Cardiac failure [Fatal]
